FAERS Safety Report 19264716 (Version 1)
Quarter: 2021Q2

REPORT INFORMATION
  Report Type: Report from Study
  Country: US (occurrence: US)
  Receive Date: 20210517
  Receipt Date: 20210517
  Transmission Date: 20210717
  Serious: Yes (Death, Hospitalization, Other)
  Sender: FDA-Public Use
  Company Number: US-EMD SERONO-9050450

PATIENT
  Age: 60 Year
  Sex: Female

DRUGS (2)
  1. AMPYRA [Concomitant]
     Active Substance: DALFAMPRIDINE
     Indication: GAIT DISTURBANCE
  2. REBIF [Suspect]
     Active Substance: INTERFERON BETA-1A
     Indication: MULTIPLE SCLEROSIS
     Route: 058
     Dates: start: 20170824

REACTIONS (10)
  - Intervertebral disc protrusion [Unknown]
  - Fall [Unknown]
  - Injection site nodule [Not Recovered/Not Resolved]
  - Mouth haemorrhage [Unknown]
  - Pulmonary oedema [Unknown]
  - Death [Fatal]
  - Renal failure [Unknown]
  - Consciousness fluctuating [Unknown]
  - Speech disorder [Unknown]
  - Cardiac disorder [Unknown]

NARRATIVE: CASE EVENT DATE: 2020
